FAERS Safety Report 4565150-8 (Version None)
Quarter: 2005Q1

REPORT INFORMATION
  Report Type: 
  Country: None (occurrence: None)
  Receive Date: 20050127
  Receipt Date: 20050127
  Transmission Date: 20050727
  Serious: No
  Sender: FDA-Public Use
  Company Number: None

PATIENT
  Age: 17 Year
  Sex: Male
  Weight: 70.7611 kg

DRUGS (1)
  1. RISPERIDONE [Suspect]
     Dosage: 2MG PO
     Route: 048

REACTIONS (1)
  - OCULOGYRATION [None]
